FAERS Safety Report 8414142-7 (Version None)
Quarter: 2012Q2

REPORT INFORMATION
  Report Type: 
  Country: None (occurrence: None)
  Receive Date: 20120605
  Receipt Date: 20120524
  Transmission Date: 20120825
  Serious: No
  Sender: FDA-Public Use
  Company Number: US-ASTRAZENECA-2012SE33943

PATIENT
  Age: 66 Year
  Sex: Female
  Weight: 57.6 kg

DRUGS (4)
  1. SINGULAIR [Concomitant]
  2. SYMBICORT [Suspect]
     Indication: ASTHMA
     Dosage: TWO PUFFS, TWO TIMES A DAY
     Route: 055
     Dates: start: 20120401, end: 20120518
  3. CLARITIN [Concomitant]
  4. PROAIR HFA [Concomitant]
     Dosage: PRN

REACTIONS (5)
  - DYSPNOEA [None]
  - COUGH [None]
  - CONDITION AGGRAVATED [None]
  - FEELING ABNORMAL [None]
  - DIZZINESS [None]
